FAERS Safety Report 15861108 (Version 1)
Quarter: 2019Q1

REPORT INFORMATION
  Report Type: Spontaneous
  Country: US (occurrence: US)
  Receive Date: 20190124
  Receipt Date: 20190124
  Transmission Date: 20190417
  Serious: Yes (Death)
  Sender: FDA-Public Use
  Company Number: US-HORIZON-BUP-RAV-0006-2019

PATIENT
  Age: 9 Year
  Sex: Male

DRUGS (13)
  1. K PHOS NEUTRAL [Concomitant]
     Active Substance: POTASSIUM PHOSPHATE, MONOBASIC\SODIUM PHOSPHATE, DIBASIC, ANHYDROUS\SODIUM PHOSPHATE, MONOBASIC, MONOHYDRATE
  2. TOPIRAMATE. [Concomitant]
     Active Substance: TOPIRAMATE
  3. BACKLOFEN [Concomitant]
  4. PREVACID [Concomitant]
     Active Substance: LANSOPRAZOLE
  5. BUPHENYL [Suspect]
     Active Substance: SODIUM PHENYLBUTYRATE
     Indication: ARGININOSUCCINATE SYNTHETASE DEFICIENCY
  6. FENOBARBITAL [Concomitant]
     Active Substance: PHENOBARBITAL
  7. ARGININE [Concomitant]
     Active Substance: ARGININE
  8. CHLORHEXIDINE [Concomitant]
     Active Substance: CHLORHEXIDINE
  9. LEVOCARNITINE. [Concomitant]
     Active Substance: LEVOCARNITINE
  10. RAVICTI [Suspect]
     Active Substance: GLYCEROL PHENYLBUTYRATE
     Indication: ARGININOSUCCINATE SYNTHETASE DEFICIENCY
     Dosage: 9.16 ML DAILY
     Dates: start: 20180219
  11. MICROSTATIN [Concomitant]
  12. FERROUS SULFATE. [Concomitant]
     Active Substance: FERROUS SULFATE
  13. DIAZEPAM. [Concomitant]
     Active Substance: DIAZEPAM

REACTIONS (3)
  - Heart rate decreased [Fatal]
  - Argininosuccinate synthetase deficiency [Fatal]
  - Oxygen saturation decreased [Fatal]

NARRATIVE: CASE EVENT DATE: 20181211
